FAERS Safety Report 5068438-X (Version None)
Quarter: 2006Q3

REPORT INFORMATION
  Report Type: 
  Country: None (occurrence: None)
  Receive Date: 20060802
  Receipt Date: 20050929
  Transmission Date: 20061208
  Serious: Yes (Hospitalization)
  Sender: FDA-Public Use
  Company Number: US-BRISTOL-MYERS SQUIBB COMPANY-13126107

PATIENT
  Age: 68 Year
  Sex: Male
  Weight: 102 kg

DRUGS (7)
  1. COUMADIN [Suspect]
     Indication: MITRAL VALVE REPLACEMENT
     Route: 048
  2. COUMADIN [Suspect]
     Indication: AORTIC VALVE REPLACEMENT
     Route: 048
  3. ALTACE [Concomitant]
     Dosage: TAKING ^FOR YEARS^
  4. SYNTHROID [Concomitant]
     Dosage: TAKING ^FOR YEARS^
  5. AMIODARONE HCL [Concomitant]
     Dosage: TAKING ^FOR YEARS^
  6. LANOXIN [Concomitant]
     Dosage: TAKING ^FOR YEARS^
  7. ACIPHEX [Concomitant]
     Dosage: TAKING ^FOR YEARS^

REACTIONS (1)
  - INTERNATIONAL NORMALISED RATIO DECREASED [None]
